FAERS Safety Report 13114840 (Version 1)
Quarter: 2017Q1

REPORT INFORMATION
  Report Type: Spontaneous
  Country: US (occurrence: US)
  Receive Date: 20170113
  Receipt Date: 20170113
  Transmission Date: 20170428
  Serious: Yes (Hospitalization)
  Sender: FDA-Public Use
  Company Number: US-LANNETT COMPANY, INC.-US-2017LAN000011

PATIENT

DRUGS (4)
  1. MORPHINE SULFATE. [Suspect]
     Active Substance: MORPHINE SULFATE
     Indication: PRODUCT USED FOR UNKNOWN INDICATION
     Dosage: 200 MG, QD
  2. HYDROMORPHONE HYDROCHLORIDE (2MG AND 4MG) [Suspect]
     Active Substance: HYDROMORPHONE HYDROCHLORIDE
     Dosage: 4 MG X 8 TABLETS A DAY
     Dates: start: 2014, end: 2016
  3. HYDROMORPHONE HYDROCHLORIDE (2MG AND 4MG) [Suspect]
     Active Substance: HYDROMORPHONE HYDROCHLORIDE
     Dosage: 4 MG X 6 TABLETS A DAY
     Dates: start: 2016
  4. HYDROMORPHONE HYDROCHLORIDE (2MG AND 4MG) [Suspect]
     Active Substance: HYDROMORPHONE HYDROCHLORIDE
     Indication: PRODUCT USED FOR UNKNOWN INDICATION
     Dosage: 4 MG X 8 TABLETS A DAY
     Dates: start: 2013, end: 2014

REACTIONS (11)
  - Respiratory failure [Unknown]
  - Acne [Unknown]
  - Inappropriate schedule of drug administration [Unknown]
  - Drug dose titration not performed [Unknown]
  - Drug withdrawal syndrome [Unknown]
  - Skin discolouration [Unknown]
  - Malaise [Unknown]
  - Urticaria [Unknown]
  - Therapeutic response shortened [Unknown]
  - Respiratory arrest [Unknown]
  - Renal failure [Unknown]

NARRATIVE: CASE EVENT DATE: 2014
